FAERS Safety Report 10233892 (Version 2)
Quarter: 2014Q2

REPORT INFORMATION
  Report Type: Report from Study
  Country: US (occurrence: US)
  Receive Date: 20140612
  Receipt Date: 20140612
  Transmission Date: 20141212
  Serious: Yes (Other)
  Sender: FDA-Public Use
  Company Number: PHEH2014US001138

PATIENT
  Age: 57 Year
  Sex: Female

DRUGS (2)
  1. EXTAVIA [Suspect]
     Indication: MULTIPLE SCLEROSIS
     Dosage: 0.062 MG, QOD (0.25ML)
     Route: 058
     Dates: start: 20140102
  2. EXTAVIA [Suspect]
     Dosage: 0.031 MG, QOD (0.125ML)
     Route: 058
     Dates: start: 20140106

REACTIONS (6)
  - Crohn^s disease [Recovered/Resolved]
  - Diabetes mellitus [Recovered/Resolved]
  - Fibromyalgia [Recovered/Resolved]
  - Arthritis [Recovered/Resolved]
  - Hypertension [Recovered/Resolved]
  - Depression [Recovered/Resolved]
